FAERS Safety Report 12631359 (Version 2)
Quarter: 2016Q3

REPORT INFORMATION
  Report Type: Spontaneous
  Country: US (occurrence: US)
  Receive Date: 20160808
  Receipt Date: 20160808
  Transmission Date: 20161109
  Serious: No
  Sender: FDA-Public Use
  Company Number: US-BEH-2015053497

PATIENT
  Sex: Female
  Weight: 61 kg

DRUGS (34)
  1. HIZENTRA [Suspect]
     Active Substance: HUMAN IMMUNOGLOBULIN G
     Indication: IMMUNODEFICIENCY COMMON VARIABLE
     Route: 058
  2. MEDROL [Concomitant]
     Active Substance: METHYLPREDNISOLONE
  3. VALTREX [Concomitant]
     Active Substance: VALACYCLOVIR HYDROCHLORIDE
  4. LIDOCAINE. [Concomitant]
     Active Substance: LIDOCAINE
  5. CEFDINIR. [Concomitant]
     Active Substance: CEFDINIR
  6. DOXYCYCLINE. [Concomitant]
     Active Substance: DOXYCYCLINE
  7. LIDOCAINE. [Concomitant]
     Active Substance: LIDOCAINE
  8. ESTRING [Concomitant]
     Active Substance: ESTRADIOL
  9. ASTELIN [Concomitant]
     Active Substance: AZELASTINE HYDROCHLORIDE
  10. NASACORT [Concomitant]
     Active Substance: TRIAMCINOLONE ACETONIDE
  11. WELLBUTRIN [Concomitant]
     Active Substance: BUPROPION HYDROCHLORIDE
  12. SODIUM CHLORIDE. [Concomitant]
     Active Substance: SODIUM CHLORIDE
  13. AZITHROMYCIN ANHYDROUS. [Concomitant]
     Active Substance: AZITHROMYCIN ANHYDROUS
  14. ACETAMINOPHEN. [Concomitant]
     Active Substance: ACETAMINOPHEN
  15. GAMMAGARD [Concomitant]
     Active Substance: HUMAN IMMUNOGLOBULIN G
  16. OLOPATADINE [Concomitant]
     Active Substance: OLOPATADINE
  17. EPIPEN [Concomitant]
     Active Substance: EPINEPHRINE
     Indication: ANAPHYLACTIC REACTION
  18. ADVAIR HFA [Concomitant]
     Active Substance: FLUTICASONE PROPIONATE\SALMETEROL XINAFOATE
  19. MEDPROPROGESTERONE [Concomitant]
  20. DEXTROSE. [Concomitant]
     Active Substance: DEXTROSE
  21. PREDNISONE. [Concomitant]
     Active Substance: PREDNISONE
  22. CYMBALTA [Concomitant]
     Active Substance: DULOXETINE HYDROCHLORIDE
  23. ESTROGEL [Concomitant]
     Active Substance: ESTRADIOL
  24. PROAIR HFA [Concomitant]
     Active Substance: ALBUTEROL SULFATE
  25. LEVOXYL [Concomitant]
     Active Substance: LEVOTHYROXINE SODIUM
  26. HIZENTRA [Suspect]
     Active Substance: HUMAN IMMUNOGLOBULIN G
     Indication: IMMUNODEFICIENCY COMMON VARIABLE
     Route: 058
  27. DIPHENHYDRAMINE. [Concomitant]
     Active Substance: DIPHENHYDRAMINE
  28. PROGESTERONE. [Concomitant]
     Active Substance: PROGESTERONE
  29. ZANTAC [Concomitant]
     Active Substance: RANITIDINE HYDROCHLORIDE
  30. ALLEGRA [Concomitant]
     Active Substance: FEXOFENADINE HYDROCHLORIDE
  31. RANITIDINE. [Concomitant]
     Active Substance: RANITIDINE
  32. LAMICTAL [Concomitant]
     Active Substance: LAMOTRIGINE
  33. ALBUTEROL. [Concomitant]
     Active Substance: ALBUTEROL
  34. OMNARIS [Concomitant]
     Active Substance: CICLESONIDE

REACTIONS (2)
  - Injection site pain [Unknown]
  - Injection site swelling [Unknown]
